FAERS Safety Report 4766451-0 (Version None)
Quarter: 2005Q3

REPORT INFORMATION
  Report Type: 
  Country: None (occurrence: None)
  Receive Date: 20050912
  Receipt Date: 20050824
  Transmission Date: 20060218
  Serious: Yes (Hospitalization)
  Sender: FDA-Public Use
  Company Number: GB-ROCHE-415503

PATIENT
  Age: 66 Year
  Sex: Female

DRUGS (4)
  1. CAPECITABINE [Suspect]
     Indication: CHEMOTHERAPY
     Dosage: 14 DAYS ON 7 DAYS REST Q 21 DAYS FOR 4 CYCLES
     Route: 048
  2. OXALIPLATIN [Suspect]
     Indication: CHEMOTHERAPY
     Dosage: FOR 4 CYCLES
     Route: 042
  3. METFORMIN [Concomitant]
     Route: 048
  4. SIMVASTIN [Concomitant]
     Dosage: AT NIGHT
     Route: 048

REACTIONS (4)
  - CHOKING SENSATION [None]
  - DRUG HYPERSENSITIVITY [None]
  - DYSPHAGIA [None]
  - DYSPNOEA [None]
